FAERS Safety Report 4750408-X (Version None)
Quarter: 2005Q3

REPORT INFORMATION
  Report Type: 
  Country: None (occurrence: None)
  Receive Date: 20050818
  Receipt Date: 20050804
  Transmission Date: 20060218
  Serious: Yes (Hospitalization)
  Sender: FDA-Public Use
  Company Number: 206348

PATIENT
  Age: 78 Year
  Sex: Female
  Weight: 59 kg

DRUGS (12)
  1. RITUXIMAB (RITUXIMAB) CONC FOR SOLUTION FOR INFUSION [Suspect]
     Indication: RHEUMATOID ARTHRITIS
     Dosage: UNK MG, DAYS 1 + 15, INTRAVENOUS
     Route: 042
     Dates: start: 20031113, end: 20031127
  2. PREDNISONE [Suspect]
     Indication: RHEUMATOID ARTHRITIS
     Dosage: UNK TABLET, ORAL
     Route: 048
     Dates: start: 20031114, end: 20031126
  3. METHYLPREDNISOLONE (METHYLPREDNISOLONE) [Suspect]
     Indication: RHEUMATOID ARTHRITIS
     Dosage: UNK MG, X2, INTAVENEOUS
     Route: 030
     Dates: start: 20031113, end: 20031127
  4. METHOTREXATE [Concomitant]
  5. FOLIC ACID [Concomitant]
  6. PREDNISONE [Concomitant]
  7. EVISTA [Concomitant]
  8. GAVISON (UNK INGREDIENTS) (GASTROINTESTINAL DRUG NOS) [Concomitant]
  9. NEXIUM [Concomitant]
  10. NORVASC [Concomitant]
  11. TIMOLOL MALEATE [Concomitant]
  12. XALATAN [Concomitant]

REACTIONS (6)
  - ATELECTASIS [None]
  - CYSTITIS [None]
  - PERINEPHRIC COLLECTION [None]
  - PLEURAL EFFUSION [None]
  - PYELONEPHRITIS [None]
  - RENAL CYST [None]
